FAERS Safety Report 9006052 (Version 2)
Quarter: 2013Q1

REPORT INFORMATION
  Report Type: Spontaneous
  Country: US (occurrence: US)
  Receive Date: 20130109
  Receipt Date: 20130128
  Transmission Date: 20140127
  Serious: No
  Sender: FDA-Public Use
  Company Number: US-009507513-1301USA001846

PATIENT
  Sex: Female

DRUGS (4)
  1. HYZAAR [Suspect]
     Indication: HYPERTENSION
     Dosage: 100/12.5, QD
     Route: 048
     Dates: start: 200901
  2. NORVASC [Concomitant]
  3. VYTORIN [Concomitant]
     Route: 048
  4. SYNTHROID [Concomitant]

REACTIONS (1)
  - Dysgeusia [Not Recovered/Not Resolved]
